FAERS Safety Report 8430985-8 (Version None)
Quarter: 2012Q2

REPORT INFORMATION
  Report Type: 
  Country: None (occurrence: None)
  Receive Date: 20120612
  Receipt Date: 20120607
  Transmission Date: 20120825
  Serious: Yes (Death)
  Sender: FDA-Public Use
  Company Number: US-PFIZER INC-2012132545

PATIENT
  Sex: Female
  Weight: 55.873 kg

DRUGS (3)
  1. ATACAND [Suspect]
     Indication: HYPERTENSION
     Dosage: 32 MG, 1X/DAY
     Route: 048
     Dates: start: 20080613
  2. PALMAZ GENESIS [Suspect]
     Dosage: UNK
     Dates: start: 20080528
  3. AMLODIPINE AND ATORVASTATIN [Suspect]
     Indication: HYPERLIPIDAEMIA
     Dosage: 10 MG/10 MG, 1X/DAY
     Route: 048
     Dates: start: 20080910

REACTIONS (1)
  - DEATH [None]
